FAERS Safety Report 9966942 (Version 1)
Quarter: 2014Q1

REPORT INFORMATION
  Report Type: Spontaneous
  Country: US (occurrence: US)
  Receive Date: 20140305
  Receipt Date: 20140305
  Transmission Date: 20141002
  Serious: Yes (Other)
  Sender: FDA-Public Use
  Company Number: ALCN2014US001360

PATIENT
  Sex: Female

DRUGS (1)
  1. TOBRAMYCIN/DEXAMETHASONE [FALCON] [Suspect]
     Route: 047

REACTIONS (2)
  - Retinal detachment [Unknown]
  - Petechiae [Unknown]
